FAERS Safety Report 7282372-6 (Version None)
Quarter: 2011Q1

REPORT INFORMATION
  Report Type: 
  Country: None (occurrence: None)
  Receive Date: 20110209
  Receipt Date: 20110127
  Transmission Date: 20110831
  Serious: Yes (Other)
  Sender: FDA-Public Use
  Company Number: US-CELGENEUS-163-21880-10110689

PATIENT
  Sex: Male
  Weight: 81.65 kg

DRUGS (5)
  1. REVLIMID [Suspect]
     Indication: MULTIPLE MYELOMA
     Route: 048
     Dates: start: 20080429
  2. TIMOPTIC [Concomitant]
     Route: 047
  3. MULTI-VITAMINS [Concomitant]
     Route: 048
  4. COSOPT [Concomitant]
     Route: 047
  5. ASPIRIN [Concomitant]
     Route: 048

REACTIONS (2)
  - CORNEAL TRANSPLANT [None]
  - EYE INFECTION [None]
